FAERS Safety Report 8340278-5 (Version None)
Quarter: 2012Q2

REPORT INFORMATION
  Report Type: 
  Country: None (occurrence: None)
  Receive Date: 20120507
  Receipt Date: 20120502
  Transmission Date: 20120825
  Serious: Yes (Hospitalization)
  Sender: FDA-Public Use
  Company Number: CHPA2011US015526

PATIENT
  Age: 46 Year
  Sex: Male

DRUGS (2)
  1. VOLTAREN [Suspect]
     Indication: JOINT SWELLING
     Dosage: 4 G, BID
     Route: 061
     Dates: start: 20111026, end: 20111028
  2. VOLTAREN [Suspect]
     Indication: OEDEMA PERIPHERAL

REACTIONS (11)
  - PYREXIA [None]
  - PURULENT DISCHARGE [None]
  - RASH [None]
  - DRUG INEFFECTIVE FOR UNAPPROVED INDICATION [None]
  - APPLICATION SITE SCAR [None]
  - DRUG ADMINISTERED AT INAPPROPRIATE SITE [None]
  - BLISTER [None]
  - ERYTHEMA [None]
  - HAEMORRHAGE [None]
  - OEDEMA PERIPHERAL [None]
  - SKIN BURNING SENSATION [None]
